FAERS Safety Report 4565999-1 (Version None)
Quarter: 2005Q1

REPORT INFORMATION
  Report Type: 
  Country: None (occurrence: None)
  Receive Date: 20050128
  Receipt Date: 20050113
  Transmission Date: 20050727
  Serious: Yes (Other)
  Sender: FDA-Public Use
  Company Number: 2005-00144

PATIENT
  Age: 8 Year

DRUGS (1)
  1. METHYLPREDNISOLONE ACETATE [Suspect]
     Indication: ENTEROCOLITIS HAEMORRHAGIC
     Dosage: 2 MG/KG, DAILY, INTRAVENOUS
     Route: 042

REACTIONS (1)
  - HYPERTROPHIC CARDIOMYOPATHY [None]
